FAERS Safety Report 24444055 (Version 2)
Quarter: 2024Q4

REPORT INFORMATION
  Report Type: Report from Study
  Country: US (occurrence: US)
  Receive Date: 20241016
  Receipt Date: 20241017
  Transmission Date: 20250114
  Serious: No
  Sender: ROCHE
  Company Number: US-ROCHE-2426573

PATIENT
  Age: 47 Year
  Sex: Female
  Weight: 99.34 kg

DRUGS (3)
  1. RITUXAN [Suspect]
     Active Substance: RITUXIMAB
     Indication: Stiff person syndrome
     Dosage: 1000 MG IN SODIUM CHLORIDE 0.9% 1000ML INFUSION EVERY 14 DAYS,?ON 27/JUL/2018, 14/AUG/2018 AND  07/J
     Route: 041
     Dates: start: 201708
  2. RITUXAN [Suspect]
     Active Substance: RITUXIMAB
     Indication: Antibody test positive
  3. RITUXAN [Suspect]
     Active Substance: RITUXIMAB
     Indication: Generalised anxiety disorder

REACTIONS (2)
  - Off label use [Unknown]
  - No adverse event [Unknown]

NARRATIVE: CASE EVENT DATE: 20170801
